FAERS Safety Report 6826388-X (Version None)
Quarter: 2010Q3

REPORT INFORMATION
  Report Type: 
  Country: None (occurrence: None)
  Receive Date: 20100709
  Receipt Date: 20100701
  Transmission Date: 20110219
  Serious: Yes (Hospitalization)
  Sender: FDA-Public Use
  Company Number: US-ASTRAZENECA-2008UW01198

PATIENT
  Age: 18147 Day
  Sex: Female
  Weight: 78.5 kg

DRUGS (68)
  1. SEROQUEL [Suspect]
     Indication: INSOMNIA
     Dosage: 25-600 MG
     Route: 048
     Dates: start: 20020506
  2. SEROQUEL [Suspect]
     Indication: BIPOLAR I DISORDER
     Dosage: 25-600 MG
     Route: 048
     Dates: start: 20020506
  3. SEROQUEL [Suspect]
     Indication: BIPOLAR DISORDER
     Dosage: 25-600 MG
     Route: 048
     Dates: start: 20020506
  4. SEROQUEL [Suspect]
     Indication: SCHIZOPHRENIA
     Dosage: 25-600 MG
     Route: 048
     Dates: start: 20020506
  5. SEROQUEL [Suspect]
     Indication: ANXIETY
     Dosage: 25-600 MG
     Route: 048
     Dates: start: 20020506
  6. SEROQUEL [Suspect]
     Indication: DEPRESSION
     Dosage: 25-600 MG
     Route: 048
     Dates: start: 20020506
  7. SEROQUEL [Suspect]
     Dosage: 100MG - 1200MG
     Route: 048
     Dates: start: 20021224, end: 20070101
  8. SEROQUEL [Suspect]
     Dosage: 100MG - 1200MG
     Route: 048
     Dates: start: 20021224, end: 20070101
  9. SEROQUEL [Suspect]
     Dosage: 100MG - 1200MG
     Route: 048
     Dates: start: 20021224, end: 20070101
  10. SEROQUEL [Suspect]
     Dosage: 100MG - 1200MG
     Route: 048
     Dates: start: 20021224, end: 20070101
  11. SEROQUEL [Suspect]
     Dosage: 100MG - 1200MG
     Route: 048
     Dates: start: 20021224, end: 20070101
  12. SEROQUEL [Suspect]
     Dosage: 100MG - 1200MG
     Route: 048
     Dates: start: 20021224, end: 20070101
  13. SEROQUEL [Suspect]
     Dosage: 100MG - 1200MG
     Route: 048
     Dates: start: 20030101, end: 20070101
  14. SEROQUEL [Suspect]
     Dosage: 100MG - 1200MG
     Route: 048
     Dates: start: 20030101, end: 20070101
  15. SEROQUEL [Suspect]
     Dosage: 100MG - 1200MG
     Route: 048
     Dates: start: 20030101, end: 20070101
  16. SEROQUEL [Suspect]
     Dosage: 100MG - 1200MG
     Route: 048
     Dates: start: 20030101, end: 20070101
  17. SEROQUEL [Suspect]
     Dosage: 100MG - 1200MG
     Route: 048
     Dates: start: 20030101, end: 20070101
  18. SEROQUEL [Suspect]
     Dosage: 100MG - 1200MG
     Route: 048
     Dates: start: 20030101, end: 20070101
  19. RISPERDAL [Concomitant]
     Indication: DEPRESSION
     Dosage: 1-3 MG DISPENSED
     Route: 048
  20. RISPERDAL [Concomitant]
     Route: 048
     Dates: start: 20060101
  21. ZYPREXA [Concomitant]
     Indication: INSOMNIA
     Route: 048
     Dates: start: 20010101
  22. ZYPREXA [Concomitant]
     Indication: BIPOLAR DISORDER
     Route: 048
     Dates: start: 20010101
  23. ZYPREXA [Concomitant]
     Indication: SCHIZOPHRENIA
     Route: 048
     Dates: start: 20010101
  24. ZYPREXA [Concomitant]
     Indication: ANXIETY
     Route: 048
     Dates: start: 20010101
  25. ZYPREXA [Concomitant]
     Indication: DEPRESSION
     Route: 048
     Dates: start: 20010101
  26. ZYPREXA [Concomitant]
     Route: 048
  27. ZYPREXA [Concomitant]
     Route: 048
  28. ZYPREXA [Concomitant]
     Route: 048
  29. ZYPREXA [Concomitant]
     Route: 048
  30. ZYPREXA [Concomitant]
     Route: 048
  31. XANAX [Concomitant]
     Route: 048
  32. RESTORIL [Concomitant]
     Indication: INSOMNIA
     Dosage: 15-30 MG
     Route: 048
  33. WELLBUTRIN [Concomitant]
     Dosage: SR ONE TAB EVERY MORNING
     Route: 048
  34. WELLBUTRIN [Concomitant]
     Dosage: XL 150-300 MG
  35. MILK OF MAGNESIA TAB [Concomitant]
     Dosage: 30-35 ML AS REQUIRED
     Route: 048
  36. NITROSTAT [Concomitant]
  37. FIORICET [Concomitant]
     Indication: HEADACHE
     Dosage: Q4H PRN
     Route: 048
  38. VENTOLIN [Concomitant]
     Dosage: 2 PUFFS Q4H PRN, 2 PUFFS Q6H PRN
     Route: 048
  39. ATIVAN [Concomitant]
     Indication: ANXIETY
     Dosage: 1 MG Q4H PRN
     Route: 048
  40. ELAVIL [Concomitant]
     Dosage: 25 MG THREE TIME A DAY, 100 MG AT BEDTIME
     Route: 048
  41. SYNTHROID [Concomitant]
     Route: 048
  42. PROTONIX [Concomitant]
     Route: 048
  43. ZOLOFT [Concomitant]
     Dosage: 100-400 MG
     Route: 048
  44. LOTREL [Concomitant]
     Dosage: 5/20 MG
     Route: 048
  45. KLOR-CON [Concomitant]
     Dosage: 20-40 EQ
     Route: 048
  46. PLAVIX [Concomitant]
     Route: 048
  47. BENADRYL [Concomitant]
     Dosage: 25 MG TID PRN
     Route: 048
  48. BENADRYL [Concomitant]
     Dosage: 50 MG Q6H PRN
  49. LOVENOX [Concomitant]
  50. PEPCID [Concomitant]
     Route: 048
  51. LASIX [Concomitant]
     Route: 048
  52. DIOVAN [Concomitant]
     Dosage: 40-80 MG
     Route: 048
  53. METOPROLOL TARTRATE [Concomitant]
     Route: 048
  54. AMBIEN [Concomitant]
     Dosage: 5 MG QHS PRN
     Route: 048
  55. PAXIL CR [Concomitant]
     Route: 048
  56. CLARITIN [Concomitant]
     Dosage: 10 MG DISPENSED
  57. VIOXX [Concomitant]
     Indication: ARTHRITIS
     Route: 048
  58. THEO-DUR [Concomitant]
     Route: 048
  59. AZMACORT [Concomitant]
     Dosage: 4 PUFFS BID
  60. CATAPRES [Concomitant]
     Route: 048
  61. GLYBURIDE [Concomitant]
     Dosage: 5 MG BEFORE BREAKFAST
     Route: 048
  62. PERCOCET [Concomitant]
     Dosage: 5/325 MG TID PRN
     Route: 048
  63. FLEXERIL [Concomitant]
     Route: 048
  64. CELEXA [Concomitant]
     Dosage: 30-25 MG
     Route: 048
  65. VALIUM [Concomitant]
     Route: 048
  66. VICODIN [Concomitant]
     Dosage: 5/500 MG DISPENSED
  67. SINEQUAN [Concomitant]
     Dosage: DISPENSED
  68. NORVASC [Concomitant]
     Route: 048

REACTIONS (19)
  - ANGINA UNSTABLE [None]
  - ASTHMA [None]
  - CHEST PAIN [None]
  - DENTAL CARIES [None]
  - DIABETES MELLITUS [None]
  - DYSFUNCTIONAL UTERINE BLEEDING [None]
  - EAR PAIN [None]
  - FATIGUE [None]
  - HYPERGLYCAEMIA [None]
  - HYPERTENSION [None]
  - LOCAL SWELLING [None]
  - MAJOR DEPRESSION [None]
  - MUSCLE STRAIN [None]
  - OBESITY [None]
  - PAIN IN EXTREMITY [None]
  - RESPIRATORY DISORDER [None]
  - SLEEP APNOEA SYNDROME [None]
  - SUICIDAL IDEATION [None]
  - TYPE 2 DIABETES MELLITUS [None]
